FAERS Safety Report 14365932 (Version 3)
Quarter: 2019Q1

REPORT INFORMATION
  Report Type: Report from Study
  Country: GB (occurrence: GB)
  Receive Date: 20180109
  Receipt Date: 20190131
  Transmission Date: 20190417
  Serious: Yes (Death, Other)
  Sender: FDA-Public Use
  Company Number: GB-ROCHE-ITM201503IM011246

PATIENT
  Age: 71 Year
  Sex: Male

DRUGS (4)
  1. OXYGEN. [Concomitant]
     Active Substance: OXYGEN
     Dosage: 6 L/MIN FOR AMBULATORY.
     Route: 065
  2. SIMVASTATIN. [Concomitant]
     Active Substance: SIMVASTATIN
  3. ESBRIET [Suspect]
     Active Substance: PIRFENIDONE
     Indication: IDIOPATHIC PULMONARY FIBROSIS
     Route: 048
     Dates: start: 20140930
  4. ESBRIET [Suspect]
     Active Substance: PIRFENIDONE
     Route: 048

REACTIONS (37)
  - Cough [Unknown]
  - Decreased appetite [Not Recovered/Not Resolved]
  - Depressed mood [Unknown]
  - Oxygen saturation decreased [Unknown]
  - Death [Fatal]
  - Weight decreased [Unknown]
  - Ill-defined disorder [Unknown]
  - Gait disturbance [Unknown]
  - Nasal dryness [Unknown]
  - Diarrhoea [Unknown]
  - Dyspnoea [Unknown]
  - Decreased appetite [Not Recovered/Not Resolved]
  - Dysgeusia [Not Recovered/Not Resolved]
  - Rhinorrhoea [Unknown]
  - Panic reaction [Unknown]
  - Nasal congestion [Unknown]
  - Erythema [Unknown]
  - Dry mouth [Unknown]
  - Palpitations [Unknown]
  - Nasopharyngitis [Recovered/Resolved]
  - Lower respiratory tract infection [Not Recovered/Not Resolved]
  - Epistaxis [Not Recovered/Not Resolved]
  - Hypotonia [Not Recovered/Not Resolved]
  - Hypersomnia [Unknown]
  - Drug ineffective [Unknown]
  - Pulmonary function test decreased [Unknown]
  - Lethargy [Not Recovered/Not Resolved]
  - Insomnia [Unknown]
  - Fatigue [Unknown]
  - Anxiety [Unknown]
  - Gastrointestinal disorder [Unknown]
  - Discomfort [Unknown]
  - Urine output decreased [Unknown]
  - Back pain [Unknown]
  - Abdominal pain upper [Unknown]
  - Panic attack [Unknown]
  - Dry skin [Unknown]

NARRATIVE: CASE EVENT DATE: 201412
